FAERS Safety Report 21529330 (Version 1)
Quarter: 2022Q4

REPORT INFORMATION
  Report Type: Report from Study
  Country: US (occurrence: US)
  Receive Date: 20221031
  Receipt Date: 20221031
  Transmission Date: 20230113
  Serious: No
  Sender: FDA-Public Use
  Company Number: US-ABBVIE-4153624

PATIENT
  Sex: Male

DRUGS (4)
  1. HUMIRA [Suspect]
     Active Substance: ADALIMUMAB
     Indication: Crohn^s disease
     Route: 058
  2. Pfizer/BioNTech covid-19 vaccination [Concomitant]
     Indication: COVID-19 immunisation
     Dosage: FREQUENCY- ONE IN ONCE- FIRST DOSE
     Route: 030
     Dates: start: 20210312, end: 20210312
  3. Pfizer/BioNTech covid-19 vaccination [Concomitant]
     Indication: COVID-19 immunisation
     Dosage: FREQUENCY- ONE IN ONCE- SECOND DOSE
     Route: 030
     Dates: start: 20210406, end: 20210406
  4. Pfizer/BioNTech covid-19 vaccination [Concomitant]
     Indication: COVID-19 immunisation
     Dosage: FREQUENCY- ONE IN ONCE- THIRD DOSE- BOOSTER DOSE
     Route: 030
     Dates: start: 20210901, end: 20210901

REACTIONS (1)
  - Crohn^s disease [Recovering/Resolving]
